FAERS Safety Report 8124665-6 (Version None)
Quarter: 2012Q1

REPORT INFORMATION
  Report Type: 
  Country: None (occurrence: None)
  Receive Date: 20120209
  Receipt Date: 20120209
  Transmission Date: 20120608
  Serious: No
  Sender: FDA-Public Use
  Company Number: None

PATIENT
  Sex: Male
  Weight: 70.306 kg

DRUGS (13)
  1. FLUOXETINE HCL  PROZAC [Concomitant]
  2. REMERON [Concomitant]
  3. LIPITOR [Concomitant]
  4. TOPAMAX [Concomitant]
  5. DIOVAN [Concomitant]
  6. DEPAKOTE [Concomitant]
  7. NUCYNTA ER [Suspect]
     Indication: PAIN
     Dosage: 100.0 MG
     Route: 048
     Dates: start: 20120112, end: 20120118
  8. VALIUM [Concomitant]
  9. BACLOFEN [Concomitant]
  10. CARDURA [Concomitant]
  11. PROTONIX [Concomitant]
  12. DILTIAZEM HCL [Concomitant]
  13. EFFEXOR XR [Concomitant]

REACTIONS (6)
  - RENAL FAILURE [None]
  - ASPIRATION [None]
  - SEROTONIN SYNDROME [None]
  - PNEUMONIA [None]
  - LOSS OF CONSCIOUSNESS [None]
  - OXYGEN SATURATION DECREASED [None]
